FAERS Safety Report 7970137-9 (Version None)
Quarter: 2011Q4

REPORT INFORMATION
  Report Type: 
  Country: None (occurrence: None)
  Receive Date: 20111212
  Receipt Date: 20111201
  Transmission Date: 20120403
  Serious: Yes (Hospitalization)
  Sender: FDA-Public Use
  Company Number: DE-JNJFOC-20111201711

PATIENT
  Age: 30 Year
  Sex: Male

DRUGS (2)
  1. AZATHIOPRINE [Concomitant]
     Route: 065
  2. REMICADE [Suspect]
     Indication: COLITIS ULCERATIVE
     Route: 042

REACTIONS (5)
  - CONFUSIONAL STATE [None]
  - PYREXIA [None]
  - ANGIOEDEMA [None]
  - RASH [None]
  - CIRCULATORY COLLAPSE [None]
